FAERS Safety Report 5183920-2 (Version None)
Quarter: 2006Q4

REPORT INFORMATION
  Report Type: 
  Country: None (occurrence: None)
  Receive Date: 20061220
  Receipt Date: 20060227
  Transmission Date: 20070319
  Serious: No
  Sender: FDA-Public Use
  Company Number: US-GLAXOSMITHKLINE-A0595287A

PATIENT
  Age: 39 Year
  Sex: Female

DRUGS (2)
  1. NICODERM CQ [Suspect]
     Dates: start: 20060211
  2. NICODERM CQ [Suspect]
     Dates: start: 20060211

REACTIONS (5)
  - CHEST PAIN [None]
  - DYSGEUSIA [None]
  - INTENTIONAL DRUG MISUSE [None]
  - PALPITATIONS [None]
  - PAROSMIA [None]
